FAERS Safety Report 5607318-5 (Version None)
Quarter: 2008Q1

REPORT INFORMATION
  Report Type: 
  Country: None (occurrence: None)
  Receive Date: 20080130
  Receipt Date: 20080122
  Transmission Date: 20080703
  Serious: Yes (Other)
  Sender: FDA-Public Use
  Company Number: US-JNJFOC-20080105653

PATIENT
  Age: 50 Year
  Sex: Female

DRUGS (2)
  1. IMODIUM A-D [Suspect]
  2. IMODIUM A-D [Suspect]
     Indication: DIARRHOEA

REACTIONS (2)
  - OVERDOSE [None]
  - VOMITING [None]
